FAERS Safety Report 23087634 (Version 1)
Quarter: 2023Q4

REPORT INFORMATION
  Report Type: Report from Study
  Country: US (occurrence: US)
  Receive Date: 20231020
  Receipt Date: 20231020
  Transmission Date: 20240109
  Serious: Yes (Hospitalization, Other)
  Sender: FDA-Public Use
  Company Number: US-JNJFOC-20231041465

PATIENT
  Age: 36 Year
  Sex: Female

DRUGS (4)
  1. MACITENTAN [Suspect]
     Active Substance: MACITENTAN
     Indication: Pulmonary arterial hypertension
     Route: 048
     Dates: start: 202309, end: 20230930
  2. MACITENTAN [Suspect]
     Active Substance: MACITENTAN
     Route: 048
     Dates: start: 20231004
  3. FUROSEMIDE [Concomitant]
     Active Substance: FUROSEMIDE
  4. SPIRONOLACTONE [Concomitant]
     Active Substance: SPIRONOLACTONE

REACTIONS (5)
  - Cardiac failure [Not Recovered/Not Resolved]
  - Hepatic cirrhosis [Not Recovered/Not Resolved]
  - Oedema [Not Recovered/Not Resolved]
  - Pain [Not Recovered/Not Resolved]
  - Fluid retention [Not Recovered/Not Resolved]

NARRATIVE: CASE EVENT DATE: 20231016
